FAERS Safety Report 21809942 (Version 2)
Quarter: 2023Q2

REPORT INFORMATION
  Report Type: Report from Study
  Country: US (occurrence: US)
  Receive Date: 20230103
  Receipt Date: 20230421
  Transmission Date: 20230722
  Serious: No
  Sender: FDA-Public Use
  Company Number: US-ABBVIE-4210958

PATIENT
  Age: 65 Year
  Sex: Male

DRUGS (1)
  1. RINVOQ [Suspect]
     Active Substance: UPADACITINIB
     Indication: Product used for unknown indication
     Route: 048

REACTIONS (3)
  - Chest pain [Not Recovered/Not Resolved]
  - COVID-19 [Recovered/Resolved]
  - Influenza [Unknown]

NARRATIVE: CASE EVENT DATE: 20230201
